FAERS Safety Report 8419926-7 (Version None)
Quarter: 2012Q2

REPORT INFORMATION
  Report Type: 
  Country: None (occurrence: None)
  Receive Date: 20120607
  Receipt Date: 20120530
  Transmission Date: 20120825
  Serious: Yes (Hospitalization)
  Sender: FDA-Public Use
  Company Number: JP-AMGEN-JPNSP2012032733

PATIENT
  Age: 79 Year
  Sex: Male
  Weight: 47 kg

DRUGS (14)
  1. RANMARK [Suspect]
     Indication: PROSTATE CANCER
     Dosage: 120 MG, Q4WK
     Route: 065
     Dates: start: 20120427
  2. MUCOTRON [Concomitant]
     Route: 048
     Dates: start: 20120413
  3. CARTOL [Concomitant]
     Indication: HYPOCALCAEMIA
     Route: 048
     Dates: start: 20120330
  4. OXINORM                            /00045603/ [Concomitant]
     Indication: CANCER PAIN
     Dosage: AS NEEDED
     Route: 048
  5. LEVOFLOXACIN [Concomitant]
     Dosage: OPTIMAL DOSE
     Route: 047
     Dates: start: 20120413
  6. ASPARA-CA [Concomitant]
     Indication: HYPOCALCAEMIA
     Route: 048
     Dates: start: 20120426
  7. MOTILIUM [Concomitant]
     Dosage: AS NEEDED
     Route: 050
  8. LANSOPRAZOLE [Concomitant]
     Route: 048
     Dates: start: 20120420
  9. SOLANTAL [Concomitant]
     Route: 048
     Dates: start: 20120413
  10. ETODOLAC [Concomitant]
     Indication: CANCER PAIN
     Route: 048
     Dates: start: 20120330
  11. DECADRON [Concomitant]
     Indication: PROSTATE CANCER
     Dosage: MORNING:2T, EVENING:1T
     Route: 048
  12. RESPLEN [Concomitant]
     Route: 048
     Dates: start: 20120413
  13. ACETAMINOPHEN [Concomitant]
     Indication: PYREXIA
     Dosage: AS NEEDED
     Route: 048
     Dates: start: 20120426
  14. FENTANYL-100 [Concomitant]
     Indication: CANCER PAIN
     Dosage: UNK UNK, TID
     Route: 062
     Dates: start: 20120413

REACTIONS (2)
  - PYREXIA [None]
  - BACTERAEMIA [None]
